FAERS Safety Report 4457766-4 (Version None)
Quarter: 2004Q3

REPORT INFORMATION
  Report Type: 
  Country: None (occurrence: None)
  Receive Date: 20040922
  Receipt Date: 20040913
  Transmission Date: 20050211
  Serious: Yes (Other)
  Sender: FDA-Public Use
  Company Number: 2004065884

PATIENT
  Age: 54 Year
  Sex: Male

DRUGS (5)
  1. NORVASC [Suspect]
     Indication: HYPERTENSION
     Dosage: ORAL
     Route: 048
     Dates: start: 20010101
  2. ASPIRIN [Concomitant]
  3. METOPROLOL TARTRATE [Concomitant]
  4. PRAVASTATIN SODIUM [Concomitant]
  5. CILAZAPRIL (CILAZAPRIL) [Concomitant]

REACTIONS (3)
  - CONDITION AGGRAVATED [None]
  - DIALYSIS [None]
  - RENAL IMPAIRMENT [None]
